FAERS Safety Report 22267140 (Version 1)
Quarter: 2023Q2

REPORT INFORMATION
  Report Type: Spontaneous
  Country: US (occurrence: None)
  Receive Date: 20230428
  Receipt Date: 20230428
  Transmission Date: 20230721
  Serious: No
  Sender: FDA-Public Use
  Company Number: None

PATIENT
  Age: 71 Year
  Sex: Female
  Weight: 120 kg

DRUGS (15)
  1. VALTREX [Suspect]
     Active Substance: VALACYCLOVIR HYDROCHLORIDE
     Indication: Genital herpes simplex
     Dosage: OTHER QUANTITY : 1 TABLET(S);?FREQUENCY : TWICE A DAY;?
     Route: 048
  2. LISINOPRIL [Concomitant]
     Active Substance: LISINOPRIL
  3. CARVEDILOL [Concomitant]
     Active Substance: CARVEDILOL
  4. DIGOXIN [Concomitant]
     Active Substance: DIGOXIN
  5. INSULIN LISPRO [Concomitant]
     Active Substance: INSULIN LISPRO
  6. TOUJEO [Concomitant]
     Active Substance: INSULIN GLARGINE
  7. COUMADIN [Concomitant]
     Active Substance: WARFARIN SODIUM
  8. FENOFIBRATE [Concomitant]
     Active Substance: FENOFIBRATE
  9. ATORVASTATIN [Concomitant]
     Active Substance: ATORVASTATIN
  10. licentus [Concomitant]
  11. TRIKAFTA [Concomitant]
     Active Substance: ELEXACAFTOR\IVACAFTOR\TEZACAFTOR
  12. VITAMINS [Concomitant]
     Active Substance: VITAMINS
  13. VITAMIN C [Concomitant]
     Active Substance: ASCORBIC ACID
  14. VITAMIN D3 [Concomitant]
     Active Substance: CHOLECALCIFEROL
  15. MAGNESIUM OXIDE [Concomitant]
     Active Substance: MAGNESIUM OXIDE

REACTIONS (2)
  - Drug ineffective [None]
  - Underdose [None]

NARRATIVE: CASE EVENT DATE: 20230415
